FAERS Safety Report 7561375-8 (Version None)
Quarter: 2011Q2

REPORT INFORMATION
  Report Type: 
  Country: None (occurrence: None)
  Receive Date: 20110621
  Receipt Date: 20101117
  Transmission Date: 20111010
  Serious: No
  Sender: FDA-Public Use
  Company Number: US-ASTRAZENECA-2010SE48130

PATIENT
  Age: 18811 Day
  Sex: Female
  Weight: 56.7 kg

DRUGS (3)
  1. HORMONE REPLACEMENT [Concomitant]
  2. PULMICORT FLEXHALER [Suspect]
     Indication: ASTHMA
     Route: 055
     Dates: start: 20090101
  3. OTC DECONGESTANT ANTIHISTAMINE [Concomitant]

REACTIONS (2)
  - DRUG INEFFECTIVE [None]
  - ASTHMA [None]
